FAERS Safety Report 4921470-6 (Version None)
Quarter: 2006Q1

REPORT INFORMATION
  Report Type: 
  Country: None (occurrence: None)
  Receive Date: 20060222
  Receipt Date: 20060222
  Transmission Date: 20060701
  Serious: Yes (Other)
  Sender: FDA-Public Use
  Company Number: None

PATIENT
  Sex: Female
  Weight: 51.2565 kg

DRUGS (2)
  1. OXYCONTIN [Suspect]
     Indication: POLYARTHRITIS
     Dosage: ONE Q12H PO
     Route: 048
  2. OXYCONTIN [Suspect]
     Indication: RADICULITIS CERVICAL
     Dosage: ONE Q12H PO
     Route: 048

REACTIONS (5)
  - DRUG INTOLERANCE [None]
  - INADEQUATE ANALGESIA [None]
  - NAUSEA [None]
  - PHARMACEUTICAL PRODUCT COMPLAINT [None]
  - WEIGHT DECREASED [None]
